FAERS Safety Report 10449829 (Version 1)
Quarter: 2014Q3

REPORT INFORMATION
  Report Type: Spontaneous
  Country: US (occurrence: None)
  Receive Date: 20140911
  Receipt Date: 20140911
  Transmission Date: 20150326
  Serious: Yes (Disabling)
  Sender: FDA-Public Use
  Company Number: None

PATIENT
  Age: 61 Year
  Sex: Female
  Weight: 68.04 kg

DRUGS (1)
  1. ARMOUR THYROID [Suspect]
     Active Substance: THYROID, PORCINE\THYROID, UNSPECIFIED
     Indication: HYPOTHYROIDISM
     Route: 048
     Dates: start: 20140905, end: 20140910

REACTIONS (11)
  - Thinking abnormal [None]
  - Fatigue [None]
  - Product quality issue [None]
  - Quality of life decreased [None]
  - Insomnia [None]
  - Anxiety [None]
  - Feeling abnormal [None]
  - Diarrhoea [None]
  - Malaise [None]
  - Depression [None]
  - Vision blurred [None]

NARRATIVE: CASE EVENT DATE: 20140905
